FAERS Safety Report 7216127-5 (Version None)
Quarter: 2011Q1

REPORT INFORMATION
  Report Type: 
  Country: None (occurrence: None)
  Receive Date: 20110107
  Receipt Date: 20101230
  Transmission Date: 20110831
  Serious: Yes (Hospitalization)
  Sender: FDA-Public Use
  Company Number: US-PERRIGO-10US000078

PATIENT
  Sex: Male
  Weight: 68.027 kg

DRUGS (4)
  1. ASPIRIN [Suspect]
     Indication: PROPHYLAXIS
     Dosage: 81 MG, QD
     Route: 048
     Dates: start: 20081201, end: 20101115
  2. QUINAPRIL [Concomitant]
     Indication: HYPERTENSION
     Dosage: 20 MG, UNKNOWN
     Route: 065
     Dates: start: 20060101
  3. PLAVIX [Suspect]
     Indication: ANTICOAGULANT THERAPY
     Dosage: 75 MG, QD
     Route: 048
     Dates: start: 20081201, end: 20101115
  4. CADUET [Concomitant]
     Indication: HYPERTENSION
     Dosage: UNKNOWN
     Route: 065
     Dates: start: 20060101

REACTIONS (4)
  - INCORRECT DRUG ADMINISTRATION DURATION [None]
  - CONSTIPATION [None]
  - GASTRIC ULCER HAEMORRHAGE [None]
  - FAECES DISCOLOURED [None]
